FAERS Safety Report 20144440 (Version 3)
Quarter: 2021Q4

REPORT INFORMATION
  Report Type: Spontaneous
  Country: FR (occurrence: FR)
  Receive Date: 20211203
  Receipt Date: 20211207
  Transmission Date: 20220303
  Serious: Yes (Congenital Anomaly)
  Sender: FDA-Public Use
  Company Number: FR-ABBVIE-21K-056-4183874-00

PATIENT
  Sex: Female

DRUGS (2)
  1. VALPROATE SODIUM [Suspect]
     Active Substance: VALPROATE SODIUM
     Indication: Product used for unknown indication
     Route: 064
  2. VALPROATE SODIUM [Suspect]
     Active Substance: VALPROATE SODIUM
     Indication: Product used for unknown indication
     Route: 064

REACTIONS (7)
  - Language disorder [Unknown]
  - Foetal exposure during pregnancy [Unknown]
  - Aggression [Unknown]
  - Tic [Unknown]
  - Learning disorder [Unknown]
  - Unevaluable event [Unknown]
  - Dysmorphism [Unknown]

NARRATIVE: CASE EVENT DATE: 20120613
